FAERS Safety Report 17426165 (Version 3)
Quarter: 2020Q3

REPORT INFORMATION
  Report Type: Spontaneous
  Country: IN (occurrence: IN)
  Receive Date: 20200217
  Receipt Date: 20200819
  Transmission Date: 20201102
  Serious: Yes (Other)
  Sender: FDA-Public Use
  Company Number: IN-PFIZER INC-2019297017

PATIENT
  Age: 42 Year
  Sex: Female

DRUGS (10)
  1. DEPURA [Concomitant]
     Active Substance: CHOLECALCIFEROL
     Dosage: ONCE EVERY 2 WEEKS 180 DAYS
     Route: 048
  2. LEVIPIL [Concomitant]
     Active Substance: LEVETIRACETAM
     Dosage: 750 MG, 2X/DAY
  3. SHELCAL [CALCIUM CARBONATE;COLECALCIFEROL] [Concomitant]
     Dosage: TWICE IN A DAY 90 DAYS
     Route: 048
  4. PAN DSR [Concomitant]
     Dosage: BEFORE BREAKFAST UNTIL TAB DEXA IS BEING TAKEN
  5. ZEVIT [ASCORBIC ACID;BIOTIN;CALCIUM PANTOTHENATE;FOLIC ACID;NICOTINAMI [Concomitant]
     Dosage: 1 DF, 1X/DAY (ONCE DAILY?1 MONTH)
  6. DEXONA [DEXAMETHASONE] [Concomitant]
     Dosage: 2 MG, 1X/DAY
  7. PAN [Concomitant]
  8. THYRONORM [Concomitant]
     Active Substance: LEVOTHYROXINE
     Dosage: ONCE IN A DAY 360 DAYS
     Route: 048
  9. LACOSAMIDE. [Concomitant]
     Active Substance: LACOSAMIDE
     Dosage: TWICE A DAY TO CONT 60 DAYS
     Route: 048
  10. AROMASIN [Suspect]
     Active Substance: EXEMESTANE
     Indication: BREAST CANCER FEMALE
     Dosage: 25 MG, 1X/DAY
     Route: 048
     Dates: start: 20190313

REACTIONS (6)
  - Loss of consciousness [Unknown]
  - Seizure [Unknown]
  - Amenorrhoea [Unknown]
  - Malaise [Unknown]
  - Dysarthria [Unknown]
  - Neoplasm progression [Unknown]

NARRATIVE: CASE EVENT DATE: 2019
